FAERS Safety Report 24315455 (Version 1)
Quarter: 2024Q3

REPORT INFORMATION
  Report Type: Spontaneous
  Country: US (occurrence: US)
  Receive Date: 20240913
  Receipt Date: 20240913
  Transmission Date: 20241017
  Serious: No
  Sender: ABBVIE
  Company Number: US-ABBVIE-5916264

PATIENT
  Sex: Female

DRUGS (1)
  1. ARMOUR THYROID [Suspect]
     Active Substance: THYROID, PORCINE
     Indication: Product used for unknown indication
     Dosage: ONE TABLET BY MOUTH AT NIGHT? 60 MG
     Route: 048

REACTIONS (4)
  - Weight increased [Unknown]
  - Drug ineffective [Unknown]
  - Product container seal issue [Not Recovered/Not Resolved]
  - Product odour abnormal [Not Recovered/Not Resolved]
